FAERS Safety Report 24743477 (Version 2)
Quarter: 2025Q1

REPORT INFORMATION
  Report Type: Report from Study
  Country: US (occurrence: US)
  Receive Date: 20241217
  Receipt Date: 20250204
  Transmission Date: 20250409
  Serious: Yes (Other)
  Sender: NOVARTIS
  Company Number: US-002147023-NVSC2024US214715

PATIENT
  Age: 49 Year
  Sex: Female

DRUGS (2)
  1. LEQVIO [Suspect]
     Active Substance: INCLISIRAN SODIUM
     Indication: Blood cholesterol
     Route: 058
     Dates: start: 202409
  2. LEQVIO [Suspect]
     Active Substance: INCLISIRAN SODIUM
     Indication: Low density lipoprotein increased

REACTIONS (13)
  - Diabetes mellitus [Unknown]
  - Blood iron decreased [Unknown]
  - Dysstasia [Unknown]
  - Haemoglobin decreased [Unknown]
  - Fatigue [Unknown]
  - Somnolence [Unknown]
  - Fall [Unknown]
  - Ankle fracture [Unknown]
  - Glycosylated haemoglobin increased [Unknown]
  - Mydriasis [Unknown]
  - Dizziness [Recovered/Resolved]
  - Product preparation error [Unknown]
  - Injection site pain [Unknown]

NARRATIVE: CASE EVENT DATE: 20241201
